FAERS Safety Report 8054521-3 (Version None)
Quarter: 2012Q1

REPORT INFORMATION
  Report Type: 
  Country: None (occurrence: None)
  Receive Date: 20120118
  Receipt Date: 20111215
  Transmission Date: 20120608
  Serious: Yes (Disabling)
  Sender: FDA-Public Use
  Company Number: JP-GLAXOSMITHKLINE-B0727928A

PATIENT
  Sex: Male

DRUGS (15)
  1. ZEFIX [Suspect]
     Indication: HEPATITIS B
     Dosage: 100MG PER DAY
     Route: 048
     Dates: start: 20040101
  2. GASTER                             /00706001/ [Concomitant]
     Route: 048
  3. GASTER                             /00706001/ [Concomitant]
     Route: 048
  4. LEXIN                              /00052501/ [Concomitant]
     Indication: AMYOTROPHIC LATERAL SCLEROSIS
     Dosage: 400MG PER DAY
     Route: 048
     Dates: start: 20100101
  5. RILUTEK [Concomitant]
     Indication: AMYOTROPHIC LATERAL SCLEROSIS
     Dosage: 100MG PER DAY
     Route: 048
     Dates: start: 20100101
  6. LIORESAL [Concomitant]
     Route: 048
  7. GASTER                             /00706001/ [Concomitant]
     Route: 048
  8. ATP                                /00090104/ [Concomitant]
     Indication: AMYOTROPHIC LATERAL SCLEROSIS
     Dosage: 180MG PER DAY
     Route: 048
     Dates: start: 20100101
  9. LOXOPROFEN [Concomitant]
     Dosage: 180MG PER DAY
     Route: 048
  10. AMLODIPINE [Concomitant]
     Dosage: 5MG PER DAY
     Route: 048
  11. LOXOPROFEN [Concomitant]
     Indication: PAIN
     Dosage: 180MG PER DAY
     Route: 048
  12. LIORESAL [Concomitant]
     Route: 048
  13. AMLODIPINE [Concomitant]
     Indication: HYPERTENSION
     Dosage: 5MG PER DAY
     Route: 048
  14. HEPSERA [Suspect]
     Indication: HEPATITIS B
     Dosage: 10MG PER DAY
     Route: 048
     Dates: start: 20050530
  15. LIORESAL [Concomitant]
     Route: 048

REACTIONS (4)
  - CHEST PAIN [None]
  - OSTEOMALACIA [None]
  - MULTIPLE FRACTURES [None]
  - BLOOD ALKALINE PHOSPHATASE INCREASED [None]
